FAERS Safety Report 7492988-X (Version None)
Quarter: 2011Q2

REPORT INFORMATION
  Report Type: 
  Country: None (occurrence: None)
  Receive Date: 20110519
  Receipt Date: 20110519
  Transmission Date: 20111010
  Serious: Yes (Life-Threatening, Other)
  Sender: FDA-Public Use
  Company Number: None

PATIENT
  Sex: Female
  Weight: 57.8 kg

DRUGS (11)
  1. RAD001 (EVEROLIMUS) [Suspect]
     Indication: COLORECTAL CANCER
     Dosage: 10.0 MG PO QD
     Route: 048
     Dates: start: 20110304, end: 20110512
  2. LOMOTIL [Concomitant]
  3. POTASSIUM CHLORIDE [Concomitant]
  4. AV-951 (TIVOZANIB) [Suspect]
     Indication: COLORECTAL CANCER
     Dosage: 1.0 MG PO QD
     Route: 048
     Dates: start: 20110304, end: 20110513
  5. NYSTATIN [Concomitant]
  6. PANTOPRAZOLE [Concomitant]
  7. TRAZODONE HCL [Concomitant]
  8. CELEXA [Concomitant]
  9. CYANOCOBALAMIN [Concomitant]
  10. MAGNESIUM GLUCONATE [Concomitant]
  11. ZOFRAN [Concomitant]

REACTIONS (1)
  - PLATELET COUNT DECREASED [None]
